FAERS Safety Report 4263992-X (Version None)
Quarter: 2004Q1

REPORT INFORMATION
  Report Type: 
  Country: None (occurrence: None)
  Receive Date: 20040102
  Receipt Date: 20031222
  Transmission Date: 20041129
  Serious: Yes (Death)
  Sender: FDA-Public Use
  Company Number: FR-JNJFOC-20031102706

PATIENT
  Age: 30 Year
  Sex: Female

DRUGS (8)
  1. REMICADE [Suspect]
     Indication: RHEUMATOID ARTHRITIS
     Dosage: 165 MG, INTRAVENOUS
     Route: 042
     Dates: start: 20020115
  2. PREDNISONE [Concomitant]
  3. CELEBREX [Concomitant]
  4. MOPRAL 20 (OMEPRAZOLE) [Concomitant]
  5. TRAMADOL HCL [Concomitant]
  6. IMOVANE (ZOPICLONE) [Concomitant]
  7. MALTOFER (FERRIC HYDROXIDE POLYMALTOSE COMPLEX) [Concomitant]
  8. FOLIC ACID [Concomitant]

REACTIONS (4)
  - ANAEMIA [None]
  - CROHN'S DISEASE [None]
  - GENERAL PHYSICAL HEALTH DETERIORATION [None]
  - PULMONARY EMBOLISM [None]
